FAERS Safety Report 5969374-4 (Version None)
Quarter: 2008Q4

REPORT INFORMATION
  Report Type: 
  Country: None (occurrence: None)
  Receive Date: 20081126
  Receipt Date: 20081119
  Transmission Date: 20090506
  Serious: Yes (Hospitalization)
  Sender: FDA-Public Use
  Company Number: JO-WATSON-2008-06874

PATIENT
  Sex: Female
  Weight: 1.09 kg

DRUGS (1)
  1. MORPHINE SULFATE INJ [Suspect]
     Indication: PAIN MANAGEMENT
     Dosage: 20 UG/KG, Q1H
     Route: 042

REACTIONS (2)
  - HYDRONEPHROSIS [None]
  - RENAL FAILURE ACUTE [None]
